FAERS Safety Report 5748306-8 (Version None)
Quarter: 2008Q2

REPORT INFORMATION
  Report Type: 
  Country: None (occurrence: None)
  Receive Date: 20080520
  Receipt Date: 20080512
  Transmission Date: 20081010
  Serious: Yes (Life-Threatening, Hospitalization, Other)
  Sender: FDA-Public Use
  Company Number: ADE# 08-067

PATIENT
  Age: 44 Year
  Sex: Male

DRUGS (1)
  1. PHENYTOIN SODIUM [Suspect]
     Dosage: 2 CAPS, 3X DAILY
     Dates: start: 20080225, end: 20080507

REACTIONS (1)
  - DRUG TOXICITY [None]
